FAERS Safety Report 5881073-6 (Version None)
Quarter: 2008Q3

REPORT INFORMATION
  Report Type: 
  Country: None (occurrence: None)
  Receive Date: 20080912
  Receipt Date: 20080618
  Transmission Date: 20090109
  Serious: No
  Sender: FDA-Public Use
  Company Number: US-ABBOTT-08P-163-0458192-00

PATIENT
  Sex: Female
  Weight: 77.18 kg

DRUGS (9)
  1. HUMIRA [Suspect]
     Indication: RHEUMATOID ARTHRITIS
     Route: 050
     Dates: start: 20080201
  2. PANTOPRAZOLE SODIUM [Concomitant]
     Indication: PROPHYLAXIS AGAINST GASTROINTESTINAL ULCER
  3. AMLODIPINE [Concomitant]
     Indication: BLOOD PRESSURE
  4. FOLIC ACID [Concomitant]
     Indication: PREMEDICATION
  5. TRAMADOL HCL [Concomitant]
     Indication: RHEUMATOID ARTHRITIS
  6. TRAMADOL HCL [Concomitant]
  7. TRAMADOL HCL [Concomitant]
     Dates: start: 20080601
  8. HORMONES NOS [Concomitant]
     Indication: HORMONE THERAPY
  9. ALENDRONATE SODIUM [Concomitant]
     Indication: BONE DISORDER

REACTIONS (5)
  - ASTHENIA [None]
  - FATIGUE [None]
  - JOINT SWELLING [None]
  - PAIN IN EXTREMITY [None]
  - PALPITATIONS [None]
